FAERS Safety Report 21759264 (Version 1)
Quarter: 2022Q4

REPORT INFORMATION
  Report Type: Spontaneous
  Country: US (occurrence: US)
  Receive Date: 20221221
  Receipt Date: 20221221
  Transmission Date: 20230113
  Serious: No
  Sender: FDA-Public Use
  Company Number: US-SUN PHARMACEUTICAL INDUSTRIES LTD-2022R1-334001

PATIENT
  Sex: Female

DRUGS (2)
  1. CARBIDOPA AND LEVODOPA [Suspect]
     Active Substance: CARBIDOPA\LEVODOPA
     Indication: Product used for unknown indication
     Dosage: 25/250
     Route: 065
  2. CARBIDOPA AND LEVODOPA [Suspect]
     Active Substance: CARBIDOPA\LEVODOPA
     Dosage: 50/200
     Route: 065

REACTIONS (1)
  - Product dose omission issue [Unknown]
